FAERS Safety Report 6550771-3 (Version None)
Quarter: 2010Q1

REPORT INFORMATION
  Report Type: 
  Country: None (occurrence: None)
  Receive Date: 20100125
  Receipt Date: 20100115
  Transmission Date: 20100710
  Serious: Yes (Other)
  Sender: FDA-Public Use
  Company Number: PHHY2009DE56132

PATIENT
  Sex: Female

DRUGS (2)
  1. LAMISIL [Suspect]
     Indication: FUNGAL INFECTION
     Dosage: ONCE DAILY
     Route: 048
  2. HORMONE ANTAGONISTS AND RELATED AGENTS [Concomitant]
     Indication: BREAST CANCER

REACTIONS (1)
  - LYMPHOEDEMA [None]
